FAERS Safety Report 19678806 (Version 2)
Quarter: 2021Q3

REPORT INFORMATION
  Report Type: Spontaneous
  Country: AU (occurrence: AU)
  Receive Date: 20210809
  Receipt Date: 20210909
  Transmission Date: 20211014
  Serious: Yes (Death, Hospitalization)
  Sender: FDA-Public Use
  Company Number: AU-MYLANLABS-2021M1049601

PATIENT
  Age: 79 Year
  Sex: Male

DRUGS (5)
  1. PERINDOPRIL/AMLODIPINE STADA [Concomitant]
     Active Substance: AMLODIPINE\PERINDOPRIL
     Indication: HYPERTENSION
     Dosage: UNK, QD
     Route: 065
  2. METOPROLOL. [Concomitant]
     Active Substance: METOPROLOL
     Indication: HYPERTENSION
     Dosage: 50 MILLIGRAM, BID
     Route: 065
  3. EZETIMIBE. [Suspect]
     Active Substance: EZETIMIBE
     Indication: HYPERCHOLESTEROLAEMIA
     Dosage: 10 MILLIGRAM, QD
     Route: 065
  4. ROSUVASTATIN. [Suspect]
     Active Substance: ROSUVASTATIN
     Indication: HYPERCHOLESTEROLAEMIA
     Dosage: 40 MILLIGRAM, QD
     Route: 065
  5. SITAGLIPTIN METFORMIN [Suspect]
     Active Substance: METFORMIN HYDROCHLORIDE\SITAGLIPTIN PHOSPHATE
     Indication: TYPE 2 DIABETES MELLITUS
     Dosage: UNK, BID
     Route: 065

REACTIONS (7)
  - Hyperkalaemia [Unknown]
  - Metabolic acidosis [Unknown]
  - Hepatic function abnormal [Fatal]
  - Weight decreased [Unknown]
  - Renal failure [Fatal]
  - Renal tubular necrosis [Fatal]
  - Muscle necrosis [Fatal]
